FAERS Safety Report 21791328 (Version 1)
Quarter: 2022Q4

REPORT INFORMATION
  Report Type: Report from Study
  Country: US (occurrence: US)
  Receive Date: 20221228
  Receipt Date: 20221228
  Transmission Date: 20230113
  Serious: Yes (Life-Threatening, Hospitalization)
  Sender: FDA-Public Use
  Company Number: US-SEATTLE GENETICS-2022SGN12375

PATIENT
  Age: 73 Year
  Sex: Male
  Weight: 68.6 kg

DRUGS (21)
  1. TISOTUMAB VEDOTIN [Suspect]
     Active Substance: TISOTUMAB VEDOTIN
     Indication: Squamous cell carcinoma of head and neck
     Dosage: 2.0 MG/KG, Q21D
     Route: 042
     Dates: start: 20220713
  2. PEMBROLIZUMAB [Suspect]
     Active Substance: PEMBROLIZUMAB
     Indication: Squamous cell carcinoma of head and neck
     Dosage: 200 MG, Q21D
     Route: 042
     Dates: start: 20220713
  3. CARBOPLATIN [Suspect]
     Active Substance: CARBOPLATIN
     Indication: Squamous cell carcinoma of head and neck
     Dosage: AUC 5 MG/ML, Q21D
     Route: 042
     Dates: start: 20220713, end: 20221102
  4. LIORESAL [Concomitant]
     Active Substance: BACLOFEN
     Indication: Hiccups
     Dosage: 10 MG, TID PRN
     Route: 048
     Dates: start: 20220113
  5. ROXICODONE [Concomitant]
     Active Substance: OXYCODONE HYDROCHLORIDE
     Indication: Cancer pain
     Dosage: 5 MG, Q6HR PRN
     Route: 048
     Dates: start: 20220705
  6. CYANOCOBALAMIN [Concomitant]
     Active Substance: CYANOCOBALAMIN
     Indication: Nutritional supplementation
     Dosage: 50 ?G, QD
     Route: 048
     Dates: start: 20180615
  7. REFRESH [CARMELLOSE SODIUM] [Concomitant]
     Indication: Dry eye
     Dosage: 1 DF IN EACH EYE, QD
     Route: 047
     Dates: start: 20220713
  8. LEVOTHYROXINE [Concomitant]
     Active Substance: LEVOTHYROXINE
     Indication: Hypothyroidism
     Dosage: 50 ?G, QD
     Route: 048
     Dates: start: 20211122
  9. XYLOCAINE [Concomitant]
     Active Substance: LIDOCAINE HYDROCHLORIDE
     Indication: Oral pain
     Dosage: 15 ML, SWISH AND SPIT Q4HR PRN
     Route: 048
     Dates: start: 20220525
  10. ZESTRIL [Concomitant]
     Active Substance: LISINOPRIL
     Indication: Hypertension
     Dosage: 10 MG, QD
     Route: 048
     Dates: start: 20201116
  11. ATIVAN [Concomitant]
     Active Substance: LORAZEPAM
     Indication: Anxiety
     Dosage: 1 MG, TID PRN
     Route: 048
     Dates: start: 20111024
  12. ZOFRAN [Concomitant]
     Active Substance: ONDANSETRON HYDROCHLORIDE
     Indication: Nausea
     Dosage: 8 MG, Q8HR PRN
     Route: 048
     Dates: start: 20220707
  13. ZOFRAN [Concomitant]
     Active Substance: ONDANSETRON HYDROCHLORIDE
     Indication: Prophylaxis
     Dosage: 16 MG
     Route: 042
     Dates: start: 20220713
  14. PHENERGAN [Concomitant]
     Active Substance: PROMETHAZINE HYDROCHLORIDE
     Indication: Nausea
     Dosage: 12.5 MG, Q6HR PRN
     Route: 048
     Dates: start: 20220519
  15. VIAGRA [Concomitant]
     Active Substance: SILDENAFIL CITRATE
     Indication: Erectile dysfunction
     Dosage: 100 MG PRN
     Route: 048
     Dates: start: 20171218
  16. IBUPROFEN [Concomitant]
     Active Substance: IBUPROFEN
     Indication: Pain
     Dosage: 400 MG, Q8HR PRN
     Route: 048
  17. DIPHENHYDRAMINE CITRATE [Concomitant]
     Active Substance: DIPHENHYDRAMINE CITRATE
     Indication: Insomnia
     Dosage: 38 MG, QPM PRN
     Route: 048
  18. DECADRON [Concomitant]
     Active Substance: DEXAMETHASONE
     Indication: Prophylaxis
     Dosage: 8 MG
     Route: 042
     Dates: start: 20220713
  19. DECADRON [Concomitant]
     Active Substance: DEXAMETHASONE
     Dosage: 0.1 % 1 OU TID X 4 DAYS
     Route: 047
     Dates: start: 20220712
  20. ALPHAGAN P [Concomitant]
     Active Substance: BRIMONIDINE TARTRATE
     Indication: Prophylaxis
     Dosage: 3 DROPS EACH EYE IMMEDIATELY BEFORE TV INFUSION
     Route: 047
     Dates: start: 20220713
  21. ELIQUIS [Concomitant]
     Active Substance: APIXABAN
     Indication: Prophylaxis
     Dosage: 5 MG, QD
     Route: 048
     Dates: start: 20221011

REACTIONS (1)
  - Respiratory failure [Not Recovered/Not Resolved]

NARRATIVE: CASE EVENT DATE: 20221224
